FAERS Safety Report 6725776-X (Version None)
Quarter: 2010Q2

REPORT INFORMATION
  Report Type: 
  Country: None (occurrence: None)
  Receive Date: 20100514
  Receipt Date: 20100505
  Transmission Date: 20101027
  Serious: Yes (Other)
  Sender: FDA-Public Use
  Company Number: FR-AMGEN-US372973

PATIENT
  Sex: Female

DRUGS (2)
  1. ENBREL [Suspect]
     Indication: RHEUMATOID ARTHRITIS
     Dosage: PREFILLED SYRINGE 50 MG WEEKLY
     Route: 058
     Dates: start: 20100101
  2. ENBREL [Suspect]
     Dosage: PREFILLED PEN 50 MG WEEKLY
     Route: 058
     Dates: start: 20090918, end: 20100101

REACTIONS (7)
  - AMNESIA [None]
  - CONDITION AGGRAVATED [None]
  - DIABETES MELLITUS INADEQUATE CONTROL [None]
  - FATIGUE [None]
  - INJECTION SITE ERYTHEMA [None]
  - INJECTION SITE HYPERSENSITIVITY [None]
  - INJECTION SITE PAIN [None]
